FAERS Safety Report 17266940 (Version 1)
Quarter: 2020Q1

REPORT INFORMATION
  Report Type: Spontaneous
  Country: US (occurrence: US)
  Receive Date: 20200113
  Receipt Date: 20200113
  Transmission Date: 20200409
  Serious: No
  Sender: FDA-Public Use
  Company Number: None

PATIENT
  Age: 52 Year
  Sex: Female
  Weight: 91.35 kg

DRUGS (8)
  1. METFORMIN [Concomitant]
     Active Substance: METFORMIN HYDROCHLORIDE
  2. BASAL INSULIN [Concomitant]
     Active Substance: INSULIN HUMAN
  3. OXCARBAZEPINE. [Concomitant]
     Active Substance: OXCARBAZEPINE
  4. JANUVIA [Concomitant]
     Active Substance: SITAGLIPTIN PHOSPHATE
  5. METOPROLOL. [Concomitant]
     Active Substance: METOPROLOL
  6. PREGABALIN 150 MG [Suspect]
     Active Substance: PREGABALIN
     Indication: FIBROMYALGIA
     Dosage: ?          QUANTITY:1 CAPSULE(S);?
     Route: 048
     Dates: start: 20191211, end: 20200113
  7. PREGABALIN 150 MG [Suspect]
     Active Substance: PREGABALIN
     Indication: NEUROPATHY PERIPHERAL
     Dosage: ?          QUANTITY:1 CAPSULE(S);?
     Route: 048
     Dates: start: 20191211, end: 20200113
  8. FLUVOXAMINE [Concomitant]
     Active Substance: FLUVOXAMINE

REACTIONS (4)
  - Fatigue [None]
  - Weight increased [None]
  - Somnolence [None]
  - Confusional state [None]

NARRATIVE: CASE EVENT DATE: 20200112
